FAERS Safety Report 6717501-3 (Version None)
Quarter: 2010Q2

REPORT INFORMATION
  Report Type: 
  Country: None (occurrence: None)
  Receive Date: 20100510
  Receipt Date: 20100430
  Transmission Date: 20101027
  Serious: Yes (Other)
  Sender: FDA-Public Use
  Company Number: US-ROCHE-701519

PATIENT
  Sex: Female
  Weight: 142.9 kg

DRUGS (1)
  1. CAPECITABINE [Suspect]
     Indication: OVARIAN CANCER
     Dosage: DOSE AS 2 TAB AM AND 3 TABS PM
     Route: 048
     Dates: start: 20090625, end: 20100401

REACTIONS (2)
  - DRUG INEFFECTIVE [None]
  - MALIGNANT NEOPLASM PROGRESSION [None]
